FAERS Safety Report 25686273 (Version 2)
Quarter: 2025Q3

REPORT INFORMATION
  Report Type: Report from Study
  Country: GB (occurrence: GB)
  Receive Date: 20250815
  Receipt Date: 20250911
  Transmission Date: 20251021
  Serious: Yes (Hospitalization, Other)
  Sender: TAKEDA
  Company Number: GB-TAKEDA-2023TUS023362

PATIENT
  Sex: Female

DRUGS (2)
  1. VEDOLIZUMAB [Suspect]
     Active Substance: VEDOLIZUMAB
     Indication: Colitis ulcerative
     Dosage: 108 MILLIGRAM, Q2WEEKS
     Dates: start: 20220712
  2. VEDOLIZUMAB [Suspect]
     Active Substance: VEDOLIZUMAB
     Dosage: 108 MILLIGRAM, Q2WEEKS

REACTIONS (16)
  - Colitis [Unknown]
  - Tonsillitis [Unknown]
  - Infection [Unknown]
  - Injection site pain [Unknown]
  - Fatigue [Unknown]
  - COVID-19 [Recovered/Resolved]
  - Device defective [Unknown]
  - Product dose omission in error [Unknown]
  - Incorrect dose administered [Unknown]
  - Injection site rash [Unknown]
  - Localised infection [Unknown]
  - Injection site mass [Unknown]
  - Device leakage [Unknown]
  - Drug effect less than expected [Unknown]
  - Injection site erythema [Unknown]
  - Injection site pruritus [Unknown]
